FAERS Safety Report 8238940-8 (Version None)
Quarter: 2012Q1

REPORT INFORMATION
  Report Type: 
  Country: None (occurrence: None)
  Receive Date: 20120327
  Receipt Date: 20120306
  Transmission Date: 20120608
  Serious: Yes (Death)
  Sender: FDA-Public Use
  Company Number: US-ROCHE-1052105

PATIENT
  Sex: Male

DRUGS (46)
  1. NOVOLIN R [Concomitant]
     Dosage: PER MILD SLIDING SCALE
     Route: 058
     Dates: start: 20110818
  2. ENOXAPARIN [Concomitant]
     Route: 058
     Dates: start: 20110819
  3. PHYTONADIONE [Concomitant]
     Route: 030
     Dates: start: 20110819, end: 20110819
  4. SENNA [Concomitant]
     Route: 048
     Dates: start: 20110819, end: 20110819
  5. FERROUS SULFATE TAB [Concomitant]
     Dates: start: 20110821, end: 20110823
  6. LORAZEPAM [Concomitant]
     Dosage: 100 ML TITRATE AS REQUIRED
     Route: 042
     Dates: start: 20110822, end: 20110823
  7. SODIUM BICARBONATE [Concomitant]
     Route: 042
     Dates: start: 20110822
  8. SODIUM CHLORIDE [Concomitant]
     Dosage: AS DIRECTED
     Route: 042
     Dates: start: 20110818, end: 20110821
  9. ROCEPHIN [Suspect]
     Indication: PRODUCT USED FOR UNKNOWN INDICATION
     Route: 042
     Dates: start: 20110819
  10. FUROSEMIDE [Concomitant]
     Route: 042
     Dates: start: 20110819, end: 20110819
  11. PHENYLEPHRINE HCL [Concomitant]
     Route: 042
     Dates: start: 20110822, end: 20110824
  12. VANCOMYCIN [Suspect]
     Dates: start: 20110819
  13. ALPRAZOLAM [Concomitant]
     Route: 048
     Dates: start: 20110819, end: 20110820
  14. ETOMIDATE [Concomitant]
     Dates: start: 20110820
  15. LIDOCAINE [Concomitant]
     Dates: start: 20110820, end: 20110821
  16. PANTOPRAZOLE [Concomitant]
     Route: 042
     Dates: start: 20110822, end: 20110823
  17. FLUCONAZOLE [Concomitant]
     Dates: start: 20110822, end: 20110823
  18. SODIUM CHLORIDE [Concomitant]
     Route: 042
  19. ASCORBIC ACID [Concomitant]
     Route: 048
     Dates: start: 20110819
  20. LEVOTHYROXINE SODIUM [Concomitant]
     Route: 048
     Dates: start: 20110819, end: 20110823
  21. DEXTROSE [Concomitant]
     Route: 042
     Dates: start: 20110821
  22. PIPERACILLIN AND TAZOBACTAM [Concomitant]
     Dosage: ML
     Dates: start: 20110819, end: 20110824
  23. LINEZOLID [Concomitant]
     Route: 042
     Dates: start: 20110819, end: 20110821
  24. FENTANYL [Concomitant]
     Route: 042
     Dates: start: 20110819
  25. FENTANYL [Concomitant]
     Route: 042
     Dates: start: 20110822, end: 20110823
  26. HYDROMORPHONE HCL [Concomitant]
     Dosage: AS NEEDED
     Route: 042
     Dates: start: 20110820, end: 20110822
  27. FLUCONAZOLE [Concomitant]
     Route: 042
     Dates: start: 20110821, end: 20110821
  28. MULTIVITAMIN [Concomitant]
     Dates: start: 20110819
  29. TAMSULOSIN HCL [Concomitant]
     Route: 048
  30. TRAMADOL HCL [Concomitant]
     Dates: start: 20110819, end: 20110823
  31. NOREPINEPHRINE BITARTRATE [Concomitant]
     Dosage: 250 ML TITRATE AS REQUIRED
     Route: 042
     Dates: start: 20110821, end: 20110823
  32. THIAMINE HCL [Concomitant]
     Route: 042
     Dates: start: 20110824, end: 20110824
  33. VANCOMYCIN [Suspect]
     Indication: PRODUCT USED FOR UNKNOWN INDICATION
     Route: 042
     Dates: start: 20110818
  34. TAMSULOSIN HCL [Concomitant]
     Route: 048
     Dates: start: 20110822
  35. NOVOLIN R [Concomitant]
     Dosage: PER MILD SLIDING SCALE
     Route: 058
     Dates: start: 20110823
  36. PHYTONADIONE [Concomitant]
     Route: 058
     Dates: start: 20110820, end: 20110822
  37. SODIUM BICARBONATE [Concomitant]
     Route: 042
     Dates: start: 20110823
  38. VECURONIUM BROMIDE [Concomitant]
     Dosage: Q4H AS NEEDED
     Route: 042
     Dates: start: 20110822, end: 20110824
  39. PANTOPRAZOLE [Concomitant]
     Route: 048
     Dates: start: 20110819
  40. ALBUTEROL [Concomitant]
     Dosage: AS DIRECTED
     Dates: start: 20110819, end: 20110822
  41. IPRATROPIUM [Concomitant]
     Dates: start: 20110819
  42. FERROUS SULFATE TAB [Concomitant]
     Route: 048
     Dates: start: 20110819
  43. LACTULOSE [Concomitant]
     Route: 048
     Dates: start: 20110819, end: 20110820
  44. ACETAMINOPHEN [Concomitant]
     Route: 054
     Dates: start: 20110818
  45. MIDAZOLAM [Concomitant]
     Dosage: TITRATION AS NEEDED
     Route: 042
     Dates: start: 20110819, end: 20110821
  46. HEPARIN [Concomitant]
     Dosage: AS DIRECTED
     Route: 042
     Dates: start: 20110820, end: 20110821

REACTIONS (3)
  - RENAL FAILURE [None]
  - THROMBOCYTOPENIA [None]
  - SEPSIS [None]
